FAERS Safety Report 22004244 (Version 1)
Quarter: 2023Q1

REPORT INFORMATION
  Report Type: Report from Study
  Country: CA (occurrence: CA)
  Receive Date: 20230217
  Receipt Date: 20230217
  Transmission Date: 20230418
  Serious: Yes (Hospitalization)
  Sender: FDA-Public Use
  Company Number: CA-TEVA-2021-CA-1963114

PATIENT
  Age: 53 Year
  Sex: Male
  Weight: 79 kg

DRUGS (7)
  1. CINQAIR [Suspect]
     Active Substance: RESLIZUMAB
     Indication: Asthma
     Dosage: LAST INFUSION DATE: 28-OCT-2021.
     Route: 042
     Dates: start: 20171025
  2. CINQAIR [Suspect]
     Active Substance: RESLIZUMAB
     Dosage: LAST INFUSION DATE: 08-FEB-2023
     Route: 042
     Dates: start: 20171025
  3. NEXIUM [Concomitant]
     Active Substance: ESOMEPRAZOLE MAGNESIUM
     Indication: Product used for unknown indication
  4. ELIQUIS [Concomitant]
     Active Substance: APIXABAN
     Indication: Product used for unknown indication
  5. VITAMIN B3 [Concomitant]
     Active Substance: NIACIN
     Indication: Product used for unknown indication
  6. PULMICORT TURBUHALER [Concomitant]
     Active Substance: BUDESONIDE
     Indication: Product used for unknown indication
  7. CALCIUM [Concomitant]
     Active Substance: CALCIUM
     Indication: Product used for unknown indication

REACTIONS (4)
  - Stent removal [Unknown]
  - Weight decreased [Unknown]
  - Hypertension [Not Recovered/Not Resolved]
  - Incorrect dose administered [Unknown]

NARRATIVE: CASE EVENT DATE: 20210101
